FAERS Safety Report 9181370 (Version 2)
Quarter: 2013Q2

REPORT INFORMATION
  Report Type: Spontaneous
  Country: US (occurrence: US)
  Receive Date: 20130322
  Receipt Date: 20130611
  Transmission Date: 20140414
  Serious: Yes (Other)
  Sender: FDA-Public Use
  Company Number: US-PFIZER INC-2013092950

PATIENT
  Age: 41 Year
  Sex: Male

DRUGS (4)
  1. CHANTIX [Suspect]
     Indication: SMOKING CESSATION THERAPY
     Dosage: UNK
     Dates: start: 20090324, end: 20090422
  2. ASA [Concomitant]
     Dosage: 81 MG, UNK
     Dates: end: 20090324
  3. MOTRIN [Concomitant]
     Dosage: 40 MG/ML
     Dates: end: 20090324
  4. LISINOPRIL [Concomitant]
     Dosage: 20 MG, UNK
     Dates: end: 20090324

REACTIONS (2)
  - Suicidal ideation [Unknown]
  - Depression [Unknown]
